FAERS Safety Report 4849888-0 (Version None)
Quarter: 2005Q4

REPORT INFORMATION
  Report Type: 
  Country: None (occurrence: None)
  Receive Date: 20051114
  Receipt Date: 20050628
  Transmission Date: 20060501
  Serious: Yes (Hospitalization)
  Sender: FDA-Public Use
  Company Number: APP200500321

PATIENT
  Sex: Male

DRUGS (1)
  1. FLUOROURACIL INJ [Suspect]
     Indication: COLORECTAL CANCER
     Dosage: (RECEIVED FOR 5 DAYS),INJECTION
     Route: 042

REACTIONS (5)
  - PLATELET COUNT DECREASED [None]
  - PYREXIA [None]
  - RED BLOOD CELL COUNT DECREASED [None]
  - STOMATITIS [None]
  - WHITE BLOOD CELL COUNT DECREASED [None]
